FAERS Safety Report 14879535 (Version 1)
Quarter: 2018Q2

REPORT INFORMATION
  Report Type: Spontaneous
  Country: US (occurrence: US)
  Receive Date: 20180425
  Receipt Date: 20180425
  Transmission Date: 20180711
  Serious: Yes (Death, Hospitalization)
  Sender: FDA-Public Use
  Company Number: None

PATIENT
  Age: 15 Year
  Sex: Male
  Weight: 56.3 kg

DRUGS (9)
  1. INSULIN/DEXTROSE [Concomitant]
  2. NOVOSEVEN [Concomitant]
     Active Substance: COAGULATION FACTOR VIIA RECOMBINANT HUMAN
  3. CEFTAZIDIME. [Concomitant]
     Active Substance: CEFTAZIDIME
  4. KAYEXALATE [Concomitant]
     Active Substance: SODIUM POLYSTYRENE SULFONATE
  5. ETOPOSIDE (VP-16) [Suspect]
     Active Substance: ETOPOSIDE
     Dates: end: 20080629
  6. MEROPENEM. [Concomitant]
     Active Substance: MEROPENEM
  7. CYTARABINE. [Suspect]
     Active Substance: CYTARABINE
     Dates: end: 20080630
  8. VANCOMYCIN [Concomitant]
     Active Substance: VANCOMYCIN
  9. RASBURICASE [Concomitant]
     Active Substance: RASBURICASE

REACTIONS (10)
  - Mental status changes [None]
  - Hepatic failure [None]
  - Splenomegaly [None]
  - Pyrexia [None]
  - Cholestasis [None]
  - Respiratory failure [None]
  - Hypotension [None]
  - Coagulopathy [None]
  - Renal failure [None]
  - Shock [None]

NARRATIVE: CASE EVENT DATE: 20080627
